FAERS Safety Report 19254646 (Version 2)
Quarter: 2021Q2

REPORT INFORMATION
  Report Type: Spontaneous
  Country: US (occurrence: US)
  Receive Date: 20210513
  Receipt Date: 20210622
  Transmission Date: 20210717
  Serious: No
  Sender: FDA-Public Use
  Company Number: US-ASTRAZENECA-2021A330172

PATIENT
  Age: 3284 Day
  Sex: Female
  Weight: 19.1 kg

DRUGS (2)
  1. SYMBICORT [Suspect]
     Active Substance: BUDESONIDE\FORMOTEROL FUMARATE DIHYDRATE
     Indication: ASTHMA
     Dosage: 2 PUFFS ONCE A DAY OR 1 PUFF ONCE A DAY UNKNOWN
     Route: 055
     Dates: start: 20210325
  2. ALBUTEROL RESCUE INHALER [Concomitant]
     Dosage: UNKNOWN
     Route: 065

REACTIONS (4)
  - Medication error [Not Recovered/Not Resolved]
  - Device breakage [Unknown]
  - Illness [Unknown]
  - Product dose omission in error [Unknown]

NARRATIVE: CASE EVENT DATE: 20210410
